FAERS Safety Report 15803069 (Version 5)
Quarter: 2019Q1

REPORT INFORMATION
  Report Type: Report from Study
  Country: DE (occurrence: DE)
  Receive Date: 20190109
  Receipt Date: 20190130
  Transmission Date: 20190417
  Serious: Yes (Hospitalization)
  Sender: FDA-Public Use
  Company Number: DE-ROCHE-2215949

PATIENT
  Age: 32 Year
  Sex: Male
  Weight: 85 kg

DRUGS (7)
  1. FENISTIL (GERMANY) [Concomitant]
     Active Substance: DIMETHINDENE MALEATE
     Dosage: OTHER DOSES ON 09/MAR/2017, 07/SEP/2017, 22/FEB/2018, 12/JUL/2018
     Route: 042
     Dates: start: 20170223
  2. OCRELIZUMAB. [Suspect]
     Active Substance: OCRELIZUMAB
     Indication: RELAPSING-REMITTING MULTIPLE SCLEROSIS
     Dosage: ADMINISTERED AS TWO 300 MG IV INFUSIONS ON DAYS 1 AND 15 FOLLOWED BY ONE 600 MG IV INFUSIONS ADMINIS
     Route: 042
     Dates: start: 20170223
  3. IBUPROFEN. [Concomitant]
     Active Substance: IBUPROFEN
     Indication: HEADACHE
     Route: 048
     Dates: start: 2012
  4. PARACETAMOL [Concomitant]
     Active Substance: ACETAMINOPHEN
     Dosage: 09/MAR/2017, 07/SEP/2017
     Route: 042
     Dates: start: 20170223
  5. IBUPROFEN. [Concomitant]
     Active Substance: IBUPROFEN
     Route: 048
     Dates: start: 20171011, end: 20171017
  6. METHYLPREDNISOLONE. [Suspect]
     Active Substance: METHYLPREDNISOLONE
     Indication: PREMEDICATION
     Dosage: MOST RECENT DOSE OF METHYLPREDNISOLONE PRIOR TO EVENT: 12/JUL/2018?OTHER DOSES ON : 09/MAR/2017, 07/
     Route: 042
     Dates: start: 20170223
  7. IBUPROFEN. [Concomitant]
     Active Substance: IBUPROFEN
     Indication: NASOPHARYNGITIS
     Route: 048
     Dates: start: 20170425, end: 20170425

REACTIONS (1)
  - Testicular infarction [Recovered/Resolved]

NARRATIVE: CASE EVENT DATE: 20181015
